FAERS Safety Report 8797111 (Version 1)
Quarter: 2012Q4

REPORT INFORMATION
  Report Type: 
  Country: IT (occurrence: IT)
  Receive Date: 20120919
  Receipt Date: 20120919
  Transmission Date: 20130627
  Serious: Yes (Hospitalization)
  Sender: FDA-Public Use
  Company Number: IT-GLAXOSMITHKLINE-B0831377A

PATIENT
  Age: 43 Year
  Sex: Male

DRUGS (3)
  1. EUTIMIL [Suspect]
     Indication: DEPRESSION
     Dosage: 3TAB per day
     Route: 048
     Dates: start: 20120908, end: 20120908
  2. MIRTAZAPINE [Suspect]
     Indication: DEPRESSION
     Dosage: 4TAB per day
     Route: 048
     Dates: start: 20120908, end: 20120908
  3. CITALOPRAM [Suspect]
     Indication: DEPRESSION
     Dosage: 3TAB per day
     Route: 048
     Dates: start: 20120908, end: 20120908

REACTIONS (3)
  - Drug abuse [Recovered/Resolved]
  - Intentional self-injury [Unknown]
  - Tachycardia [Recovered/Resolved]
